FAERS Safety Report 15893896 (Version 1)
Quarter: 2019Q1

REPORT INFORMATION
  Report Type: Spontaneous
  Country: US (occurrence: US)
  Receive Date: 20190131
  Receipt Date: 20190131
  Transmission Date: 20190417
  Serious: No
  Sender: FDA-Public Use
  Company Number: US-STRIDES ARCOLAB LIMITED-2018SP009968

PATIENT
  Age: 31 Year
  Sex: Female

DRUGS (11)
  1. LOPINAVIR/RITONAVIR [Suspect]
     Active Substance: LOPINAVIR\RITONAVIR
     Dosage: TWO COURSE OF TOTAL DAILY DOSE 4
     Route: 048
  2. ZIDOVUDINE. [Suspect]
     Active Substance: ZIDOVUDINE
     Dosage: TWO COURSE OF TOTAL DAILY DOSE 1
     Route: 042
  3. LAMIVUDINE AND ZIDOVUDINE TABLETS [Suspect]
     Active Substance: LAMIVUDINE\ZIDOVUDINE
     Indication: PRODUCT USED FOR UNKNOWN INDICATION
     Dosage: ONE COURSE OF TOTAL DAILY DOSE 600
     Route: 048
  4. DOLUTEGRAVIR [Suspect]
     Active Substance: DOLUTEGRAVIR
     Indication: PRODUCT USED FOR UNKNOWN INDICATION
     Dosage: ONE COURSE OF TOTAL DAILY DOSE 50
     Route: 048
  5. ABACAVIR W/DOLUTEGRAVIR/LAMIVUDINE [Suspect]
     Active Substance: ABACAVIR SULFATE\DOLUTEGRAVIR SODIUM\LAMIVUDINE
     Indication: PRODUCT USED FOR UNKNOWN INDICATION
     Dosage: ONE COURSE OF TOTAL DAILY DOSE 600ONE COURSE OF TOTAL DAILY DOSE 1
     Route: 048
  6. ZIDOVUDINE. [Suspect]
     Active Substance: ZIDOVUDINE
     Indication: PRODUCT USED FOR UNKNOWN INDICATION
     Dosage: ONE COURSE OF TOTAL DAILY DOSE 2
     Route: 042
  7. TENOFOVIR DISOPROXIL FUMARATE. [Suspect]
     Active Substance: TENOFOVIR DISOPROXIL FUMARATE
     Indication: PRODUCT USED FOR UNKNOWN INDICATION
     Dosage: ONE COURSE OF TOTAL DAILY DOSE 300
     Route: 048
  8. COBICISTAT W/DARUNAVIR [Suspect]
     Active Substance: COBICISTAT\DARUNAVIR ETHANOLATE
     Indication: PRODUCT USED FOR UNKNOWN INDICATION
     Dosage: ONE COURSE OF TOTAL DAILY DOSE 1
     Route: 048
  9. LOPINAVIR/RITONAVIR [Suspect]
     Active Substance: LOPINAVIR\RITONAVIR
     Indication: PRODUCT USED FOR UNKNOWN INDICATION
     Dosage: ONE COURSE OF TOTAL DAILY DOSE 4
     Route: 048
  10. ABACAVIR. [Suspect]
     Active Substance: ABACAVIR
     Indication: PRODUCT USED FOR UNKNOWN INDICATION
     Dosage: ONE COURSE OF TOTAL DAILY DOSE 600
     Route: 048
  11. TENOFOVIR DISOPROXIL FUMARATE. [Suspect]
     Active Substance: TENOFOVIR DISOPROXIL FUMARATE
     Dosage: ONE COURSE OF TOTAL DAILY DOSE 25
     Route: 048

REACTIONS (1)
  - Exposure during pregnancy [Unknown]
